FAERS Safety Report 8672431 (Version 2)
Quarter: 2013Q1

REPORT INFORMATION
  Report Type: Spontaneous
  Country: US (occurrence: None)
  Receive Date: 20120703
  Receipt Date: 20121119
  Transmission Date: 20140127
  Serious: Yes (Other)
  Sender: FDA-Public Use
  Company Number: 2012MA007554

PATIENT
  Age: 74 Year
  Sex: Male
  Weight: 112.49 kg

DRUGS (14)
  1. PRAMIPEXOLE DIHYDROCHLORIDE [Suspect]
     Indication: PARKINSON^S DISEASE
     Dosage: 0.5 MG;
     Dates: start: 20120523
  2. LISINOPRIL [Concomitant]
  3. METFORMIN HYDROCHLORIDE [Concomitant]
  4. GLIPIZIDE [Concomitant]
  5. SINEMET [Concomitant]
  6. ASPIRIN [Concomitant]
  7. ROSUVASTATIN [Concomitant]
  8. MELOXICAM [Concomitant]
  9. DICYCLOMINE [Concomitant]
  10. GABAPENTIN [Concomitant]
  11. LYRICA [Concomitant]
  12. CRESTOR [Concomitant]
  13. PREDNISONE [Concomitant]
  14. CLARITHROMYCIN [Concomitant]

REACTIONS (4)
  - Unresponsive to stimuli [None]
  - Fall [None]
  - Skin discolouration [None]
  - Asthenia [None]
